FAERS Safety Report 17736913 (Version 1)
Quarter: 2020Q2

REPORT INFORMATION
  Report Type: Spontaneous
  Country: GB (occurrence: GB)
  Receive Date: 20200502
  Receipt Date: 20200502
  Transmission Date: 20200714
  Serious: Yes (Disabling, Other)
  Sender: FDA-Public Use
  Company Number: GB-TEVA-2020-GB-1228633

PATIENT
  Age: 60 Year
  Sex: Female
  Weight: 43 kg

DRUGS (2)
  1. VARENICLINE [Interacting]
     Active Substance: VARENICLINE
     Indication: SMOKING CESSATION THERAPY
     Route: 048
     Dates: start: 201808, end: 201809
  2. LIOTHYRONINE SODIUM. [Suspect]
     Active Substance: LIOTHYRONINE SODIUM
     Route: 065

REACTIONS (4)
  - Depression [Recovered/Resolved with Sequelae]
  - Drug interaction [Unknown]
  - Psychotic disorder [Not Recovered/Not Resolved]
  - Suicide attempt [Not Recovered/Not Resolved]

NARRATIVE: CASE EVENT DATE: 201808
